FAERS Safety Report 7154365-0 (Version None)
Quarter: 2010Q4

REPORT INFORMATION
  Report Type: 
  Country: None (occurrence: None)
  Receive Date: 20101213
  Receipt Date: 20101201
  Transmission Date: 20110411
  Serious: Yes (Death)
  Sender: FDA-Public Use
  Company Number: CN-WATSON-2010-15767

PATIENT
  Age: 83 Year
  Sex: Male

DRUGS (5)
  1. PENICILLIN G SODIUM (WATSON LABORATORIES) [Suspect]
     Indication: UPPER RESPIRATORY TRACT INFECTION
     Dosage: 6,400,000 U, TID
     Route: 042
  2. LEVOFLOXACIN [Suspect]
     Indication: UPPER RESPIRATORY TRACT INFECTION
     Dosage: UNK
     Route: 042
  3. CEFOXITIN [Suspect]
     Indication: UPPER RESPIRATORY TRACT INFECTION
     Dosage: 2 G DAILY
     Route: 042
  4. MOXIFLOXACIN [Suspect]
     Indication: UPPER RESPIRATORY TRACT INFECTION
     Dosage: DAILY
     Route: 042
  5. CEFOSELIS [Suspect]
     Indication: UPPER RESPIRATORY TRACT INFECTION
     Dosage: UNK
     Route: 042

REACTIONS (2)
  - COMA [None]
  - ENCEPHALOPATHY [None]
